FAERS Safety Report 12185687 (Version 1)
Quarter: 2016Q1

REPORT INFORMATION
  Report Type: Spontaneous
  Country: US (occurrence: US)
  Receive Date: 20160316
  Receipt Date: 20160316
  Transmission Date: 20160526
  Serious: No
  Sender: FDA-Public Use
  Company Number: US-GALDERMA-US16000350

PATIENT
  Sex: Female
  Weight: 51 kg

DRUGS (1)
  1. CALCITRIOL (CALCITRIOL) OINTMENT 3 MCG/G [Suspect]
     Active Substance: CALCITRIOL
     Indication: PSORIASIS
     Dosage: 3 MCG/G
     Route: 061
     Dates: start: 201512, end: 201601

REACTIONS (1)
  - Drug ineffective [Unknown]
